FAERS Safety Report 8816960 (Version 1)
Quarter: 2012Q4

REPORT INFORMATION
  Report Type: Spontaneous
  Country: US (occurrence: None)
  Receive Date: 20121002
  Receipt Date: 20121002
  Transmission Date: 20130627
  Serious: Yes (Other)
  Sender: FDA-Public Use
  Company Number: None

PATIENT
  Age: 60 Year
  Sex: Male

DRUGS (1)
  1. CIALIS [Suspect]
     Indication: ERECTILE DYSFUNCTION
     Dates: start: 20100119, end: 20120919

REACTIONS (5)
  - Dyspepsia [None]
  - Burning sensation [None]
  - Eye pain [None]
  - Nasal discomfort [None]
  - Vision blurred [None]
